FAERS Safety Report 14623787 (Version 1)
Quarter: 2018Q1

REPORT INFORMATION
  Report Type: Spontaneous
  Country: TW (occurrence: TW)
  Receive Date: 20180312
  Receipt Date: 20180312
  Transmission Date: 20180509
  Serious: Yes (Other)
  Sender: FDA-Public Use
  Company Number: TW-ACCORD-064120

PATIENT
  Age: 56 Year
  Sex: Male

DRUGS (2)
  1. FLUOROURACIL. [Suspect]
     Active Substance: FLUOROURACIL
     Indication: GASTRIC CANCER STAGE III
     Dosage: BIWEEKLY 3000 MG/M2
  2. DOCETAXEL. [Suspect]
     Active Substance: DOCETAXEL
     Indication: GASTRIC CANCER STAGE III
     Dosage: BIWEEKLY 40 MG/M2

REACTIONS (3)
  - Drug ineffective [Unknown]
  - Nail ridging [Recovered/Resolved]
  - Biliary tract infection [Unknown]
